FAERS Safety Report 13752355 (Version 1)
Quarter: 2017Q3

REPORT INFORMATION
  Report Type: Spontaneous
  Country: US (occurrence: US)
  Receive Date: 20170713
  Receipt Date: 20170713
  Transmission Date: 20171127
  Serious: No
  Sender: FDA-Public Use
  Company Number: US-JAZZ-2017-US-006885

PATIENT
  Sex: Female

DRUGS (36)
  1. METHOCARBAMOL. [Concomitant]
     Active Substance: METHOCARBAMOL
  2. DIAZEPAM. [Concomitant]
     Active Substance: DIAZEPAM
  3. PHENERGAN [Concomitant]
     Active Substance: PROMETHAZINE HYDROCHLORIDE
  4. TRAZODONE [Concomitant]
     Active Substance: TRAZODONE HYDROCHLORIDE
  5. PREDNISONE. [Concomitant]
     Active Substance: PREDNISONE
  6. VALIUM [Concomitant]
     Active Substance: DIAZEPAM
  7. HYDROXYCHLOROQUINE [Concomitant]
     Active Substance: HYDROXYCHLOROQUINE
  8. MOVANTIK [Concomitant]
     Active Substance: NALOXEGOL OXALATE
  9. PERCOCET                           /00446701/ [Concomitant]
     Active Substance: ACETAMINOPHEN\OXYCODONE HYDROCHLORIDE\OXYCODONE TEREPHTHALATE
  10. XANAX [Concomitant]
     Active Substance: ALPRAZOLAM
  11. WELLBUTRIN [Concomitant]
     Active Substance: BUPROPION HYDROCHLORIDE
  12. OPANA [Concomitant]
     Active Substance: OXYMORPHONE HYDROCHLORIDE
  13. MS CONTIN [Concomitant]
     Active Substance: MORPHINE SULFATE
  14. XYREM [Suspect]
     Active Substance: SODIUM OXYBATE
     Dosage: DOSE ADJUSTMENT
     Route: 048
     Dates: start: 201408, end: 201410
  15. OXYCONTIN [Concomitant]
     Active Substance: OXYCODONE HYDROCHLORIDE
  16. PROVIGIL [Concomitant]
     Active Substance: MODAFINIL
  17. SULFASALAZINE. [Concomitant]
     Active Substance: SULFASALAZINE
  18. PERCOCET                           /00446701/ [Concomitant]
     Active Substance: ACETAMINOPHEN\OXYCODONE HYDROCHLORIDE\OXYCODONE TEREPHTHALATE
  19. TOPIRAMATE. [Concomitant]
     Active Substance: TOPIRAMATE
  20. LYRICA [Concomitant]
     Active Substance: PREGABALIN
  21. MORPHINE SULF [Concomitant]
     Active Substance: MORPHINE SULFATE
  22. SULFAZINE [Concomitant]
     Active Substance: SULFASALAZINE
  23. BISOPROLOL /HCTZ [Concomitant]
  24. NABUMETONE. [Concomitant]
     Active Substance: NABUMETONE
  25. TOPAMAX [Concomitant]
     Active Substance: TOPIRAMATE
  26. VOLTAREN [Concomitant]
     Active Substance: DICLOFENAC SODIUM
  27. PREVACID [Concomitant]
     Active Substance: LANSOPRAZOLE
  28. DOXEPIN [Concomitant]
     Active Substance: DOXEPIN
  29. PRAVASTATIN SODIUM. [Concomitant]
     Active Substance: PRAVASTATIN SODIUM
  30. OMEPRAZOLE. [Concomitant]
     Active Substance: OMEPRAZOLE
  31. LIDOCAINE HCL [Concomitant]
     Active Substance: LIDOCAINE HYDROCHLORIDE
  32. OXYCODONE AND ACETAMINOPHEN [Concomitant]
     Active Substance: ACETAMINOPHEN\OXYCODONE HYDROCHLORIDE
  33. XYREM [Suspect]
     Active Substance: SODIUM OXYBATE
     Indication: SOMNOLENCE
     Dosage: 2.25G, BID
     Route: 048
     Dates: start: 201408, end: 201408
  34. XYREM [Suspect]
     Active Substance: SODIUM OXYBATE
     Dosage: 4.5G, BID
     Route: 048
     Dates: start: 201410
  35. ABILIFY [Concomitant]
     Active Substance: ARIPIPRAZOLE
  36. LEXAPRO [Concomitant]
     Active Substance: ESCITALOPRAM OXALATE

REACTIONS (2)
  - Eye irritation [Unknown]
  - Photophobia [Not Recovered/Not Resolved]
